FAERS Safety Report 9354104 (Version 2)
Quarter: 2013Q3

REPORT INFORMATION
  Report Type: Spontaneous
  Country: US (occurrence: US)
  Receive Date: 20130618
  Receipt Date: 20130717
  Transmission Date: 20140515
  Serious: Yes (Hospitalization)
  Sender: FDA-Public Use
  Company Number: US-GLAXOSMITHKLINE-A0837853A

PATIENT
  Age: 48 Year
  Sex: Male

DRUGS (1)
  1. AVANDIA [Suspect]
     Indication: TYPE 2 DIABETES MELLITUS
     Route: 048
     Dates: start: 20010313

REACTIONS (6)
  - Acute myocardial infarction [Not Recovered/Not Resolved]
  - Ill-defined disorder [Unknown]
  - Nerve injury [Unknown]
  - Cardiac operation [Unknown]
  - Coronary artery disease [Unknown]
  - Diabetic neuropathy [Unknown]
